FAERS Safety Report 10394184 (Version 2)
Quarter: 2014Q4

REPORT INFORMATION
  Report Type: Spontaneous
  Country: JP (occurrence: JP)
  Receive Date: 20140819
  Receipt Date: 20141114
  Transmission Date: 20150528
  Serious: Yes (Hospitalization)
  Sender: FDA-Public Use
  Company Number: PHHY2013JP161556

PATIENT
  Age: 88 Year
  Sex: Male

DRUGS (4)
  1. PLETAAL [Concomitant]
     Active Substance: CILOSTAZOL
     Indication: DEMENTIA ALZHEIMER^S TYPE
     Route: 048
     Dates: start: 20110202, end: 20130225
  2. NICERGOLINE [Concomitant]
     Active Substance: NICERGOLINE
     Indication: DEMENTIA ALZHEIMER^S TYPE
     Route: 048
     Dates: start: 20110202, end: 20130225
  3. EXELON PATCH [Suspect]
     Active Substance: RIVASTIGMINE
     Indication: DEMENTIA ALZHEIMER^S TYPE
     Dosage: 4.5 MG, UNK
     Route: 062
     Dates: start: 20120806, end: 20130225
  4. E C DOPAL [Concomitant]
     Indication: DEMENTIA ALZHEIMER^S TYPE
     Route: 048
     Dates: start: 20110202, end: 20130225

REACTIONS (2)
  - Gait disturbance [Unknown]
  - Depressed level of consciousness [Recovering/Resolving]

NARRATIVE: CASE EVENT DATE: 20130225
